FAERS Safety Report 7721547-6 (Version None)
Quarter: 2011Q3

REPORT INFORMATION
  Report Type: 
  Country: None (occurrence: None)
  Receive Date: 20110825
  Receipt Date: 20110809
  Transmission Date: 20111222
  Serious: Yes (Life-Threatening, Hospitalization)
  Sender: FDA-Public Use
  Company Number: 2011MA011568

PATIENT
  Age: 31 Year
  Sex: Female

DRUGS (3)
  1. BENDROFLUMETHIAZIDE (BENDROFLUMETHIAZIDE) [Suspect]
     Indication: HYPERTENSION
     Dosage: 5 MG;QD
  2. RAMIPRIL [Suspect]
     Indication: HYPERTENSION
     Dosage: 10 MG;QD
  3. MESALAMINE [Suspect]
     Indication: CROHN'S DISEASE
     Dosage: 800 MG;BID

REACTIONS (15)
  - PARAESTHESIA [None]
  - ASTHENIA [None]
  - CONFUSIONAL STATE [None]
  - PALPITATIONS [None]
  - BLOOD OSMOLARITY DECREASED [None]
  - INAPPROPRIATE ANTIDIURETIC HORMONE SECRETION [None]
  - WATER INTOXICATION [None]
  - HYPOKALAEMIA [None]
  - VOMITING [None]
  - CARDIAC ARREST [None]
  - SYNCOPE [None]
  - HYPONATRAEMIA [None]
  - VENTRICULAR EXTRASYSTOLES [None]
  - CONVULSION [None]
  - POLYDIPSIA [None]
